FAERS Safety Report 17550677 (Version 1)
Quarter: 2020Q1

REPORT INFORMATION
  Report Type: Report from Study
  Country: US (occurrence: US)
  Receive Date: 20200317
  Receipt Date: 20200317
  Transmission Date: 20200409
  Serious: Yes (Other)
  Sender: FDA-Public Use
  Company Number: US-BAYER-2020-043268

PATIENT
  Age: 79 Year
  Sex: Male

DRUGS (2)
  1. ASA [Suspect]
     Active Substance: ASPIRIN
     Indication: ATRIAL FIBRILLATION
  2. APIXABAN [Suspect]
     Active Substance: APIXABAN
     Dosage: 5 DF, BID

REACTIONS (3)
  - Haematoma [None]
  - Gastrointestinal haemorrhage [None]
  - Fall [None]
